FAERS Safety Report 21754925 (Version 2)
Quarter: 2023Q2

REPORT INFORMATION
  Report Type: Spontaneous
  Country: CA (occurrence: CA)
  Receive Date: 20221220
  Receipt Date: 20230418
  Transmission Date: 20230721
  Serious: Yes (Other)
  Sender: FDA-Public Use
  Company Number: CA-SAMSUNG BIOEPIS-SB-2021-24210

PATIENT
  Age: 31 Year
  Sex: Female
  Weight: 108 kg

DRUGS (4)
  1. INFLIXIMAB [Suspect]
     Active Substance: INFLIXIMAB
     Indication: Crohn^s disease
     Route: 042
  2. DEPO-PROVERA [Concomitant]
     Active Substance: MEDROXYPROGESTERONE ACETATE
     Indication: Product used for unknown indication
     Dosage: UNKNOWN, SINGLE USE VIAL, SUSPENSION INTRAMUSCULAR
     Route: 065
  3. MAGNESIUM GLYCINATE [Concomitant]
     Active Substance: MAGNESIUM GLYCINATE
     Indication: Headache
     Route: 065
  4. MONTELUKAST [Concomitant]
     Active Substance: MONTELUKAST SODIUM
     Indication: Product used for unknown indication
     Dosage: UNKNOWN
     Route: 065

REACTIONS (29)
  - Cold sweat [Not Recovered/Not Resolved]
  - Asthma [Not Recovered/Not Resolved]
  - Burning sensation [Not Recovered/Not Resolved]
  - Condition aggravated [Not Recovered/Not Resolved]
  - Cough [Not Recovered/Not Resolved]
  - Cystitis [Not Recovered/Not Resolved]
  - Discomfort [Not Recovered/Not Resolved]
  - Dyspnoea [Not Recovered/Not Resolved]
  - Feeling cold [Not Recovered/Not Resolved]
  - Gastrointestinal sounds abnormal [Not Recovered/Not Resolved]
  - Hypersensitivity [Not Recovered/Not Resolved]
  - Hypertonic bladder [Not Recovered/Not Resolved]
  - Injection site erythema [Not Recovered/Not Resolved]
  - Malaise [Not Recovered/Not Resolved]
  - Pain [Not Recovered/Not Resolved]
  - Skin disorder [Not Recovered/Not Resolved]
  - Urinary tract infection [Not Recovered/Not Resolved]
  - COVID-19 [Not Recovered/Not Resolved]
  - Decreased appetite [Not Recovered/Not Resolved]
  - Diarrhoea [Not Recovered/Not Resolved]
  - Fatigue [Not Recovered/Not Resolved]
  - Haematochezia [Not Recovered/Not Resolved]
  - Hyperhidrosis [Not Recovered/Not Resolved]
  - Migraine [Not Recovered/Not Resolved]
  - Pain in jaw [Not Recovered/Not Resolved]
  - Therapeutic response shortened [Not Recovered/Not Resolved]
  - Inappropriate schedule of product administration [Not Recovered/Not Resolved]
  - Off label use [Not Recovered/Not Resolved]
  - Intentional product use issue [Not Recovered/Not Resolved]
